FAERS Safety Report 8237780-3 (Version None)
Quarter: 2012Q1

REPORT INFORMATION
  Report Type: 
  Country: None (occurrence: None)
  Receive Date: 20120326
  Receipt Date: 20120312
  Transmission Date: 20120608
  Serious: Yes (Hospitalization, Other)
  Sender: FDA-Public Use
  Company Number: 2008AL009196

PATIENT
  Age: 68 Year
  Sex: Male
  Weight: 119.9764 kg

DRUGS (42)
  1. MAGNESIUM HYDROXIDE TAB [Concomitant]
  2. LOTREL [Concomitant]
  3. TAMSULOSIN HCL [Concomitant]
  4. CARVEDILOL [Concomitant]
  5. TAMSULOSIN HCL [Concomitant]
  6. FUROSEMIDE [Concomitant]
  7. BYETTA [Concomitant]
  8. MULTI-VITAMIN [Concomitant]
  9. CARVEDILOL [Concomitant]
  10. LASIX [Concomitant]
  11. ALPRAZOLAM [Concomitant]
  12. CALCIUM CARBONATE [Concomitant]
  13. METFORMIN HCL [Concomitant]
  14. LORTAB [Concomitant]
  15. LORATADINE [Concomitant]
  16. DORZOLAMIDE [Concomitant]
  17. ASPIRIN [Concomitant]
  18. WARFARIN SODIUM [Concomitant]
  19. BUPROPION HCL [Concomitant]
  20. SPIRONOLACTONE [Concomitant]
  21. ANDROGEL [Concomitant]
  22. ANDRODERM [Concomitant]
  23. CYANOCOBALAMIN [Concomitant]
  24. FUROSEMIDE [Concomitant]
  25. LOTREL [Concomitant]
  26. LORATADINE [Concomitant]
  27. GABAPENTIN [Concomitant]
  28. BUPROPION HCL [Concomitant]
  29. ATORVASTATIN [Concomitant]
  30. PRILOSEC [Concomitant]
  31. CIPROFLOXACIN [Concomitant]
  32. ZANTAC [Concomitant]
  33. COSOPT [Concomitant]
  34. CALCIUM CARBONATE [Concomitant]
  35. PRILOSEC [Concomitant]
  36. DIGOXIN [Suspect]
     Indication: CARDIAC FAILURE
     Dosage: 0.25 MG;QD;PO
     Route: 048
     Dates: start: 20070101, end: 20080101
  37. DIGOXIN [Suspect]
     Indication: ARRHYTHMIA
     Dosage: 0.25 MG;QD;PO
     Route: 048
     Dates: start: 20070101, end: 20080101
  38. SANCTURA [Concomitant]
  39. CLINDAMYCIN [Concomitant]
  40. METFORMIN HCL [Concomitant]
  41. FLEXERIL [Concomitant]
  42. POTASSIUM CHLORIDE [Concomitant]

REACTIONS (21)
  - ATRIAL FLUTTER [None]
  - LEFT VENTRICULAR DYSFUNCTION [None]
  - SLEEP APNOEA SYNDROME [None]
  - TOXICITY TO VARIOUS AGENTS [None]
  - ATRIOVENTRICULAR BLOCK COMPLETE [None]
  - DIABETES MELLITUS [None]
  - HYPERTENSION [None]
  - CARDIOMEGALY [None]
  - INTERNATIONAL NORMALISED RATIO DECREASED [None]
  - PNEUMONIA [None]
  - CARDIOMYOPATHY [None]
  - CARDIAC FAILURE CONGESTIVE [None]
  - OSTEOARTHRITIS [None]
  - TACHYCARDIA [None]
  - DILATATION VENTRICULAR [None]
  - CHEST PAIN [None]
  - ELECTROCARDIOGRAM QRS COMPLEX PROLONGED [None]
  - LUNG CONSOLIDATION [None]
  - OBESITY [None]
  - HYPERPARATHYROIDISM [None]
  - VENTRICULAR DYSSYNCHRONY [None]
